FAERS Safety Report 6106396-7 (Version None)
Quarter: 2009Q1

REPORT INFORMATION
  Report Type: 
  Country: None (occurrence: None)
  Receive Date: 20090306
  Receipt Date: 20090212
  Transmission Date: 20090719
  Serious: Yes (Hospitalization)
  Sender: FDA-Public Use
  Company Number: FR-B.I. PHARMACEUTICALS,INC./RIDGEFIELD-2008-FF-00895FF

PATIENT
  Sex: Male

DRUGS (25)
  1. VIRAMUNE [Suspect]
     Indication: HIV INFECTION
     Dosage: 400MG
     Route: 048
     Dates: start: 20081007, end: 20081118
  2. TRUVADA [Suspect]
     Indication: HIV INFECTION
     Dates: start: 20081007, end: 20081118
  3. TRUVADA [Suspect]
     Indication: HEPATITIS B
  4. ASPIRIN [Concomitant]
     Indication: HYPERTENSION
  5. ASPIRIN [Concomitant]
     Indication: MYOCARDIAL ISCHAEMIA
  6. PLAVIX [Concomitant]
     Indication: HYPERTENSION
  7. PLAVIX [Concomitant]
     Indication: MYOCARDIAL ISCHAEMIA
  8. KREDEX [Concomitant]
     Indication: HYPERTENSION
  9. KREDEX [Concomitant]
     Indication: MYOCARDIAL ISCHAEMIA
  10. FLUDEX [Concomitant]
     Indication: HYPERTENSION
  11. FLUDEX [Concomitant]
     Indication: MYOCARDIAL ISCHAEMIA
  12. NICARDIPINE HCL [Concomitant]
     Indication: HYPERTENSION
  13. NICARDIPINE HCL [Concomitant]
     Indication: MYOCARDIAL ISCHAEMIA
  14. MEDIATENSYL [Concomitant]
     Indication: HYPERTENSION
  15. MEDIATENSYL [Concomitant]
     Indication: MYOCARDIAL ISCHAEMIA
  16. TRIATEC [Concomitant]
     Indication: HYPERTENSION
     Dates: end: 20081120
  17. TRIATEC [Concomitant]
     Indication: MYOCARDIAL ISCHAEMIA
  18. HYPERIUM [Concomitant]
     Indication: HYPERTENSION
  19. HYPERIUM [Concomitant]
     Indication: MYOCARDIAL ISCHAEMIA
  20. TAMSULOSINE [Concomitant]
     Indication: BENIGN PROSTATIC HYPERPLASIA
  21. LYRICA [Concomitant]
     Indication: NEURALGIA
  22. MYSOLINE [Concomitant]
     Indication: NEURALGIA
  23. OMEPRAZOLE [Concomitant]
     Indication: GASTRITIS
  24. DIAMICRON [Concomitant]
     Indication: DIABETES MELLITUS
     Dates: end: 20081120
  25. EZETROL [Concomitant]
     Indication: HYPERCHOLESTEROLAEMIA

REACTIONS (5)
  - CYTOLYTIC HEPATITIS [None]
  - DYSPNOEA [None]
  - EOSINOPHILIA [None]
  - RASH MACULO-PAPULAR [None]
  - RENAL FAILURE [None]
